FAERS Safety Report 18509373 (Version 2)
Quarter: 2020Q4

REPORT INFORMATION
  Report Type: Spontaneous
  Country: JP (occurrence: JP)
  Receive Date: 20201117
  Receipt Date: 20201216
  Transmission Date: 20210114
  Serious: Yes (Hospitalization)
  Sender: FDA-Public Use
  Company Number: JP-009507513-2011JPN001039J

PATIENT
  Age: 42 Year
  Sex: Male
  Weight: 53 kg

DRUGS (5)
  1. PACLITAXEL. [Suspect]
     Active Substance: PACLITAXEL
     Indication: LUNG ADENOCARCINOMA
     Dosage: 300 MILLIGRAM ONCE
     Route: 041
     Dates: start: 20200420, end: 20200706
  2. APREPITANT. [Concomitant]
     Active Substance: APREPITANT
     Dosage: 125MG DAY1, 80 MG DAY 2,3
     Route: 048
  3. KEYTRUDA [Suspect]
     Active Substance: PEMBROLIZUMAB
     Indication: LUNG ADENOCARCINOMA
     Dosage: 200 MG ONCE
     Route: 041
     Dates: start: 20200420, end: 20200803
  4. CARBOPLATIN. [Suspect]
     Active Substance: CARBOPLATIN
     Indication: LUNG ADENOCARCINOMA
     Dosage: 900 MILLIGRAM ONCE
     Route: 041
     Dates: start: 20200420, end: 20200706
  5. ALOXI [Concomitant]
     Active Substance: PALONOSETRON HYDROCHLORIDE
     Dosage: UNK
     Route: 041
     Dates: start: 20200420, end: 20200706

REACTIONS (1)
  - Skin disorder [Not Recovered/Not Resolved]

NARRATIVE: CASE EVENT DATE: 20200519
